FAERS Safety Report 7961535-8 (Version None)
Quarter: 2011Q4

REPORT INFORMATION
  Report Type: 
  Country: None (occurrence: None)
  Receive Date: 20111202
  Receipt Date: 20110809
  Transmission Date: 20120403
  Serious: Yes (Hospitalization)
  Sender: FDA-Public Use
  Company Number: AUR-APL-2011-04512

PATIENT
  Age: 61 Year
  Sex: Male

DRUGS (4)
  1. CITALOPRAM HYDROBROMIDE [Suspect]
     Indication: DEPRESSION
  2. SIMVASTATIN [Concomitant]
  3. FLUOROURACIL [Suspect]
     Indication: RECTAL CANCER
     Dosage: (225 MG/M2,1 D)
  4. OXYCODONE HCL [Concomitant]

REACTIONS (7)
  - C-REACTIVE PROTEIN INCREASED [None]
  - CARDIOTOXICITY [None]
  - FATIGUE [None]
  - ELECTROCARDIOGRAM ST SEGMENT ELEVATION [None]
  - HAEMOGLOBIN DECREASED [None]
  - PRESYNCOPE [None]
  - SINUS BRADYCARDIA [None]
